FAERS Safety Report 6258076-5 (Version None)
Quarter: 2009Q3

REPORT INFORMATION
  Report Type: 
  Country: None (occurrence: None)
  Receive Date: 20090707
  Receipt Date: 20090701
  Transmission Date: 20100115
  Serious: Yes (Death)
  Sender: FDA-Public Use
  Company Number: PHEH2009US07015

PATIENT
  Sex: Female

DRUGS (7)
  1. GLEEVEC [Suspect]
     Indication: CHRONIC MYELOID LEUKAEMIA
     Dosage: 400 MG/DAY
     Dates: start: 20090601
  2. PROTONIX [Concomitant]
  3. VITAMIN E [Concomitant]
  4. HYDROCHLOROTHIAZIDE [Concomitant]
  5. PREMARIN [Concomitant]
  6. MEDROXYPROGESTERONE [Concomitant]
  7. KLOR-CON [Concomitant]

REACTIONS (1)
  - DEATH [None]
